FAERS Safety Report 15712061 (Version 2)
Quarter: 2018Q4

REPORT INFORMATION
  Report Type: Spontaneous
  Country: JP (occurrence: JP)
  Receive Date: 20181212
  Receipt Date: 20181218
  Transmission Date: 20190205
  Serious: Yes (Death, Other)
  Sender: FDA-Public Use
  Company Number: JP-009507513-1807JPN001341J

PATIENT
  Age: 78 Year
  Sex: Male

DRUGS (1)
  1. KEYTRUDA [Suspect]
     Active Substance: PEMBROLIZUMAB
     Indication: TRANSITIONAL CELL CARCINOMA
     Dosage: 200 MILLIGRAM, Q3W
     Route: 041
     Dates: start: 20180529, end: 2018

REACTIONS (3)
  - Oedema [Recovering/Resolving]
  - Malignant neoplasm progression [Fatal]
  - Renal impairment [Unknown]

NARRATIVE: CASE EVENT DATE: 20180710
